FAERS Safety Report 4467053-6 (Version None)
Quarter: 2004Q4

REPORT INFORMATION
  Report Type: 
  Country: None (occurrence: None)
  Receive Date: 20041001
  Receipt Date: 20041001
  Transmission Date: 20050328
  Serious: No
  Sender: FDA-Public Use
  Company Number: None

PATIENT
  Age: 63 Year
  Sex: Male
  Weight: 68.9467 kg

DRUGS (1)
  1. OXYCODONE HCL [Suspect]
     Indication: PAIN
     Dosage: PO BID
     Route: 048

REACTIONS (4)
  - CONSTIPATION [None]
  - HEADACHE [None]
  - HYPERHIDROSIS [None]
  - TREMOR [None]
